FAERS Safety Report 16811093 (Version 2)
Quarter: 2019Q3

REPORT INFORMATION
  Report Type: Spontaneous
  Country: BE (occurrence: BE)
  Receive Date: 20190916
  Receipt Date: 20190918
  Transmission Date: 20191005
  Serious: Yes (Other)
  Sender: FDA-Public Use
  Company Number: BE-JNJFOC-20190915710

PATIENT
  Sex: Male
  Weight: 77 kg

DRUGS (11)
  1. DEXAMETHASONE. [Suspect]
     Active Substance: DEXAMETHASONE
     Indication: B-CELL LYMPHOMA
     Dosage: R DHAP
     Route: 065
     Dates: start: 201605
  2. CISPLATIN. [Suspect]
     Active Substance: CISPLATIN
     Indication: B-CELL LYMPHOMA
     Dosage: R DHAP
     Route: 065
     Dates: start: 201605
  3. RITUXIMAB. [Suspect]
     Active Substance: RITUXIMAB
     Indication: B-CELL LYMPHOMA
     Dosage: R DHAP
     Route: 065
     Dates: start: 201605
  4. VINCRISTINE [Suspect]
     Active Substance: VINCRISTINE
     Indication: B-CELL LYMPHOMA
     Dosage: R CHOP : 8 CYCLI
     Route: 065
     Dates: start: 2013
  5. DOXORUBICIN HYDROCHLORIDE. [Suspect]
     Active Substance: DOXORUBICIN HYDROCHLORIDE
     Indication: B-CELL LYMPHOMA
     Dosage: R CHOP : 8 CYCLI
     Route: 065
     Dates: start: 2013
  6. CYCLOPHOSPHAMIDE. [Suspect]
     Active Substance: CYCLOPHOSPHAMIDE
     Indication: B-CELL LYMPHOMA
     Dosage: R CHOP : 8 CYCLI
     Route: 065
     Dates: start: 2013
  7. RITUXIMAB. [Suspect]
     Active Substance: RITUXIMAB
     Dosage: R CHOP : 8 CYCLI
     Route: 065
     Dates: start: 2013
  8. PREDNISOLONE. [Suspect]
     Active Substance: PREDNISOLONE
     Indication: B-CELL LYMPHOMA
     Dosage: R CHOP : 8 CYCLI
     Route: 065
     Dates: start: 2013
  9. CYTARABINE. [Suspect]
     Active Substance: CYTARABINE
     Indication: B-CELL LYMPHOMA
     Dosage: R DHAP
     Route: 065
     Dates: start: 201605
  10. BENDAMUSTINE [Suspect]
     Active Substance: BENDAMUSTINE
     Indication: B-CELL LYMPHOMA
     Dosage: CYCLIC; POWDER (EXCEPT DUSTING POWDER)
     Route: 042
     Dates: start: 201811
  11. OBINUTUZUMAB. [Suspect]
     Active Substance: OBINUTUZUMAB
     Indication: B-CELL LYMPHOMA
     Dosage: GAZYVA + BENDAMUSTINE
     Route: 065
     Dates: start: 201811

REACTIONS (4)
  - Off label use [Unknown]
  - B-cell lymphoma recurrent [Unknown]
  - Cytomegalovirus infection [Not Recovered/Not Resolved]
  - Product use in unapproved indication [Unknown]

NARRATIVE: CASE EVENT DATE: 2013
